FAERS Safety Report 4288704-5 (Version None)
Quarter: 2004Q1

REPORT INFORMATION
  Report Type: 
  Country: None (occurrence: None)
  Receive Date: 20040205
  Receipt Date: 20040122
  Transmission Date: 20041129
  Serious: Yes (Congenital Anomaly)
  Sender: FDA-Public Use
  Company Number: 03P-056-0239913-00

PATIENT
  Age: 1 Day
  Sex: Male

DRUGS (1)
  1. DEPAKENE [Suspect]
     Indication: DRUG EXPOSURE DURING PREGNANCY

REACTIONS (6)
  - ARNOLD-CHIARI MALFORMATION [None]
  - DEVELOPMENTAL DELAY [None]
  - FACIAL DYSMORPHISM [None]
  - FOETAL VALPROATE SYNDROME [None]
  - MATERNAL DRUGS AFFECTING FOETUS [None]
  - NERVOUS SYSTEM DISORDER [None]
